FAERS Safety Report 5912883-4 (Version None)
Quarter: 2008Q4

REPORT INFORMATION
  Report Type: 
  Country: None (occurrence: None)
  Receive Date: 20081003
  Receipt Date: 20080919
  Transmission Date: 20090506
  Serious: Yes (Other)
  Sender: FDA-Public Use
  Company Number: SPV1-2008-01870

PATIENT
  Age: 18 Year
  Sex: Male
  Weight: 54.4 kg

DRUGS (3)
  1. MEZAVANT(MESALAZINE, MESALAMINE) TABLET [Suspect]
     Indication: COLITIS
     Dosage: 4.8 G, 1X/DAY/QD ORAL; 2.4 G, 1X/DAY:QD, ORAL
     Route: 048
     Dates: start: 20080701, end: 20080701
  2. MEZAVANT(MESALAZINE, MESALAMINE) TABLET [Suspect]
     Indication: COLITIS
     Dosage: 4.8 G, 1X/DAY/QD ORAL; 2.4 G, 1X/DAY:QD, ORAL
     Route: 048
     Dates: start: 20080718, end: 20080719
  3. PROBIOTIC FEMINA (LACTOBACILLUS ACIDOPHILUS, LACTOBACILLUS BIFIDUS) [Concomitant]

REACTIONS (6)
  - DIARRHOEA [None]
  - HYPOKINESIA [None]
  - IMMOBILE [None]
  - MUSCULOSKELETAL STIFFNESS [None]
  - OFF LABEL USE [None]
  - VOMITING [None]
